FAERS Safety Report 9932093 (Version 1)
Quarter: 2014Q1

REPORT INFORMATION
  Report Type: Spontaneous
  Country: US (occurrence: US)
  Receive Date: 20140228
  Receipt Date: 20140228
  Transmission Date: 20141002
  Serious: No
  Sender: FDA-Public Use
  Company Number: US-ABBVIE-13P-163-1120555-00

PATIENT
  Age: 74 Year
  Sex: Male

DRUGS (2)
  1. ANDROGEL [Suspect]
     Indication: BLOOD TESTOSTERONE DECREASED
     Dosage: TWO PUMPS PER DAY, 1.5 MONTHS
     Dates: start: 201303
  2. ANDROGEL [Suspect]
     Dosage: FOUR PUMPS PER DAY
     Dates: start: 2013

REACTIONS (1)
  - Blood testosterone decreased [Unknown]
